FAERS Safety Report 6532290-3 (Version None)
Quarter: 2010Q1

REPORT INFORMATION
  Report Type: 
  Country: None (occurrence: None)
  Receive Date: 20100108
  Receipt Date: 20091228
  Transmission Date: 20100710
  Serious: No
  Sender: FDA-Public Use
  Company Number: US-B.I. PHARMACEUTICALS,INC./RIDGEFIELD-2009-BP-14946BP

PATIENT
  Sex: Female

DRUGS (3)
  1. SPIRIVA [Suspect]
     Indication: LUNG NEOPLASM
     Route: 055
     Dates: start: 20070101
  2. SPIRIVA [Suspect]
     Dosage: 18 MCG
     Route: 055
     Dates: start: 20070101, end: 20070101
  3. ASPIRIN [Concomitant]
     Indication: PROPHYLAXIS
     Dates: start: 20010101

REACTIONS (2)
  - DRY MOUTH [None]
  - HEART RATE INCREASED [None]
